FAERS Safety Report 19427337 (Version 1)
Quarter: 2021Q2

REPORT INFORMATION
  Report Type: Spontaneous
  Country: US (occurrence: US)
  Receive Date: 20210617
  Receipt Date: 20210617
  Transmission Date: 20210717
  Serious: Yes (Death, Hospitalization, Other)
  Sender: FDA-Public Use
  Company Number: US-ALEMBIC PHARMACUETICALS LIMITED-2021SCAL000270

PATIENT

DRUGS (5)
  1. ZIPRASIDONE. [Suspect]
     Active Substance: ZIPRASIDONE
     Indication: SCHIZOAFFECTIVE DISORDER
     Dosage: UNK
     Route: 065
  2. LITHIUM CARBONATE. [Suspect]
     Active Substance: LITHIUM CARBONATE
     Indication: SCHIZOAFFECTIVE DISORDER
     Dosage: UNK
     Route: 065
  3. QUETIAPINE FUMARATE. [Concomitant]
     Active Substance: QUETIAPINE FUMARATE
     Indication: SCHIZOAFFECTIVE DISORDER
     Dosage: UNK
     Route: 065
  4. HALOPERIDOL. [Suspect]
     Active Substance: HALOPERIDOL
     Indication: SCHIZOAFFECTIVE DISORDER
     Dosage: UNK
     Route: 065
  5. LISINOPRIL. [Suspect]
     Active Substance: LISINOPRIL
     Indication: HYPERTENSION
     Dosage: UNK
     Route: 065

REACTIONS (15)
  - Toxicity to various agents [Fatal]
  - Ataxia [Unknown]
  - Clonus [Unknown]
  - Tremor [Unknown]
  - Unresponsive to stimuli [Unknown]
  - Gait disturbance [Unknown]
  - Condition aggravated [Unknown]
  - Nystagmus [Unknown]
  - Hypotension [Unknown]
  - Treatment noncompliance [Unknown]
  - Lethargy [Unknown]
  - Confusional state [Unknown]
  - Bradycardia [Unknown]
  - Encephalopathy [Unknown]
  - Incoherent [Unknown]
